FAERS Safety Report 19705531 (Version 1)
Quarter: 2021Q3

REPORT INFORMATION
  Report Type: Spontaneous
  Country: AU (occurrence: AU)
  Receive Date: 20210816
  Receipt Date: 20210816
  Transmission Date: 20211014
  Serious: Yes (Death)
  Sender: FDA-Public Use
  Company Number: AU-ROCHE-2891375

PATIENT
  Age: 37 Year
  Sex: Male

DRUGS (2)
  1. DIAZEPAM. [Suspect]
     Active Substance: DIAZEPAM
     Indication: ANXIETY
     Dosage: AVERAGE DOSE WAS EQUIVALENT TO 4.9 TABLETS PER DAY
     Route: 048
  2. PREGABALIN. [Suspect]
     Active Substance: PREGABALIN
     Indication: NEURALGIA
     Dosage: AVERAGE DOSE SUSPECTED TO BE 5.3 TABLETS A DAY
     Route: 048

REACTIONS (1)
  - Toxicity to various agents [Fatal]
